FAERS Safety Report 4321030-4 (Version None)
Quarter: 2004Q1

REPORT INFORMATION
  Report Type: 
  Country: None (occurrence: None)
  Receive Date: 20040303
  Receipt Date: 20031128
  Transmission Date: 20041129
  Serious: Yes (Life-Threatening)
  Sender: FDA-Public Use
  Company Number: 2003SA000162

PATIENT
  Age: 62 Year
  Sex: Male
  Weight: 54 kg

DRUGS (2)
  1. CARDIOPLEGIC [Suspect]
     Dosage: 4 L; ONCE
     Dates: start: 20031009, end: 20031009
  2. THYMOGLOBULIN [Suspect]
     Dosage: 1.5 MG /KG ONCE; INTRAVENOUS
     Route: 042
     Dates: start: 20031009, end: 20031009

REACTIONS (3)
  - CARDIAC ARREST [None]
  - HYPERKALAEMIA [None]
  - MYOCARDIAL INFARCTION [None]
